FAERS Safety Report 15824907 (Version 3)
Quarter: 2019Q1

REPORT INFORMATION
  Report Type: Report from Study
  Country: US (occurrence: US)
  Receive Date: 20190115
  Receipt Date: 20190205
  Transmission Date: 20190417
  Serious: Yes (Death, Hospitalization)
  Sender: FDA-Public Use
  Company Number: US-TAIHO ONCOLOGY  INC-EU-2018-02342

PATIENT
  Age: 88 Year
  Sex: Male
  Weight: 72.28 kg

DRUGS (14)
  1. METOPROLOL. [Concomitant]
     Active Substance: METOPROLOL
     Dosage: NI
  2. PANTOPRAZOLE [Concomitant]
     Active Substance: PANTOPRAZOLE
     Dosage: NI
  3. VITAMIN B6 [Concomitant]
     Active Substance: PYRIDOXINE HYDROCHLORIDE
     Dosage: NI
  4. FUROSEMIDE. [Concomitant]
     Active Substance: FUROSEMIDE
     Dosage: NI
  5. FINASTERIDE. [Concomitant]
     Active Substance: FINASTERIDE
     Dosage: NI
  6. NITROSTAT [Concomitant]
     Active Substance: NITROGLYCERIN
     Dosage: NI
  7. DOXAZOSIN [Concomitant]
     Active Substance: DOXAZOSIN\DOXAZOSIN MESYLATE
     Dosage: NI
  8. GARLIC. [Concomitant]
     Active Substance: GARLIC
     Dosage: NI
  9. ASPIRIN 81 [Concomitant]
     Active Substance: ASPIRIN
     Dosage: NI
  10. VITAMIN C [Concomitant]
     Active Substance: ASCORBIC ACID
     Dosage: NI
  11. FERROUS SULFATE. [Concomitant]
     Active Substance: FERROUS SULFATE
     Dosage: NI
  12. OMEPRAZOLE. [Concomitant]
     Active Substance: OMEPRAZOLE
     Dosage: NI
  13. LONSURF [Suspect]
     Active Substance: TIPIRACIL HYDROCHLORIDE\TRIFLURIDINE
     Indication: COLON CANCER
     Dosage: CYCLE 2 STARTED ON 12/NOV/2018 X 5 DAYS, DAY 1-5, STOPPED
     Route: 048
     Dates: start: 20181022, end: 20181116
  14. ATORVASTATIN [Concomitant]
     Active Substance: ATORVASTATIN
     Dosage: NI

REACTIONS (2)
  - Cardiac failure congestive [Fatal]
  - Anaemia [Recovered/Resolved]

NARRATIVE: CASE EVENT DATE: 20181115
